FAERS Safety Report 8847654 (Version 4)
Quarter: 2012Q4

REPORT INFORMATION
  Report Type: 
  Country: FR (occurrence: FR)
  Receive Date: 20121018
  Receipt Date: 20121120
  Transmission Date: 20130627
  Serious: Yes (Hospitalization, Other)
  Sender: FDA-Public Use
  Company Number: FR-ABBOTT-12P-056-0993824-00

PATIENT
  Sex: Male
  Weight: 75 kg

DRUGS (13)
  1. HUMIRA [Suspect]
     Indication: ANKYLOSING SPONDYLITIS
     Route: 058
     Dates: start: 200605
  2. HUMIRA [Suspect]
     Indication: CROHN^S DISEASE
     Dosage: due to therapeutic escape with REMICADE
     Route: 058
     Dates: end: 200610
  3. REMICADE [Suspect]
     Indication: ANKYLOSING SPONDYLITIS
     Dates: start: 200203, end: 2005
  4. REMICADE [Suspect]
     Indication: CROHN^S DISEASE
     Dates: start: 200508, end: 200605
  5. REMICADE [Suspect]
     Dates: start: 200610, end: 200702
  6. REMICADE [Suspect]
     Route: 042
     Dates: start: 200704
  7. SKENAN [Concomitant]
     Indication: PRODUCT USED FOR UNKNOWN INDICATION
  8. ZOXAN [Concomitant]
     Indication: PRODUCT USED FOR UNKNOWN INDICATION
  9. INEXIUM [Concomitant]
     Indication: PRODUCT USED FOR UNKNOWN INDICATION
  10. HALDOL [Concomitant]
     Indication: PRODUCT USED FOR UNKNOWN INDICATION
  11. VALIUM [Concomitant]
     Indication: PRODUCT USED FOR UNKNOWN INDICATION
  12. LARGACTIL [Concomitant]
     Indication: PRODUCT USED FOR UNKNOWN INDICATION
  13. FIVASA [Concomitant]
     Indication: PRODUCT USED FOR UNKNOWN INDICATION

REACTIONS (9)
  - Peripheral sensory neuropathy [Not Recovered/Not Resolved]
  - Diplopia [Unknown]
  - Weight decreased [Unknown]
  - Drug intolerance [Unknown]
  - Nausea [Unknown]
  - Subileus [Unknown]
  - Arthralgia [Unknown]
  - Hyporeflexia [Unknown]
  - Neuropathy peripheral [Unknown]
